FAERS Safety Report 4296261-2 (Version None)
Quarter: 2004Q1

REPORT INFORMATION
  Report Type: 
  Country: None (occurrence: None)
  Receive Date: 20040217
  Receipt Date: 20030930
  Transmission Date: 20041129
  Serious: No
  Sender: FDA-Public Use
  Company Number: US-GLAXOSMITHKLINE-A0428070A

PATIENT
  Age: 58 Year
  Sex: Female

DRUGS (8)
  1. LAMICTAL [Suspect]
     Indication: BIPOLAR DISORDER
     Dosage: 50MG TWICE PER DAY
     Route: 048
     Dates: start: 20030811, end: 20030930
  2. NEURONTIN [Concomitant]
  3. CLONOPIN [Concomitant]
  4. SYNTHROID [Concomitant]
  5. ZESTRIL [Concomitant]
  6. VIOXX [Concomitant]
  7. LIPITOR [Concomitant]
  8. RISPERDAL [Concomitant]

REACTIONS (10)
  - CONFUSIONAL STATE [None]
  - COORDINATION ABNORMAL [None]
  - DIARRHOEA [None]
  - DYSARTHRIA [None]
  - ERYTHEMA [None]
  - EYELID MARGIN CRUSTING [None]
  - LYMPHADENOPATHY [None]
  - PHARYNGOLARYNGEAL PAIN [None]
  - PRURITUS [None]
  - SOMNOLENCE [None]
